FAERS Safety Report 7114317-3 (Version None)
Quarter: 2010Q4

REPORT INFORMATION
  Report Type: 
  Country: None (occurrence: None)
  Receive Date: 20101119
  Receipt Date: 20101110
  Transmission Date: 20110411
  Serious: Yes (Hospitalization)
  Sender: FDA-Public Use
  Company Number: US-JNJCH-2010026203

PATIENT
  Age: 55 Year
  Sex: Male

DRUGS (2)
  1. BISACODYL [Suspect]
     Indication: BOWEL PREPARATION
     Dosage: TEXT:UNKNOWN
     Route: 048
  2. POLYETHYLENE GLYCOL [Suspect]
     Indication: BOWEL PREPARATION
     Dosage: TEXT:UNKNOWN
     Route: 048

REACTIONS (1)
  - SMALL INTESTINAL OBSTRUCTION [None]
